FAERS Safety Report 8983231 (Version 2)
Quarter: 2013Q2

REPORT INFORMATION
  Report Type: Report from Study
  Country: MX (occurrence: MX)
  Receive Date: 20121224
  Receipt Date: 20130628
  Transmission Date: 20140414
  Serious: No
  Sender: FDA-Public Use
  Company Number: PHHY2012MX119155

PATIENT
  Age: 58 Year
  Sex: Female

DRUGS (5)
  1. EXELON PATCH [Suspect]
     Indication: DEMENTIA ALZHEIMER^S TYPE
     Dosage: 4.6 UKN, UNK
     Route: 062
     Dates: start: 201005
  2. EXELON PATCH [Suspect]
     Indication: NERVOUS SYSTEM DISORDER
     Dosage: 9.5 MG / 24 HOURS
     Route: 062
  3. EXELON PATCH [Suspect]
     Dosage: 9.5 MG, QOD
     Route: 062
     Dates: start: 201211
  4. EBIXA [Concomitant]
     Dosage: 1 DF, DAILY
     Dates: start: 200812
  5. RISPERIDONE [Concomitant]
     Dosage: 0.25 DF, UNK
     Dates: start: 201002

REACTIONS (4)
  - Discomfort [Not Recovered/Not Resolved]
  - Inappropriate schedule of drug administration [Not Recovered/Not Resolved]
  - Restlessness [Not Recovered/Not Resolved]
  - Abdominal discomfort [Not Recovered/Not Resolved]
